FAERS Safety Report 8950023 (Version 1)
Quarter: 2012Q4

REPORT INFORMATION
  Report Type: 
  Country: US (occurrence: US)
  Receive Date: 20121205
  Receipt Date: 20121205
  Transmission Date: 20130627
  Serious: No
  Sender: FDA-Public Use
  Company Number: US-BAYER-2012-126024

PATIENT
  Age: 64 Year
  Sex: Male
  Weight: 84 kg

DRUGS (3)
  1. BAYER GENUINE ASPIRIN ORIGINAL STRENGTH [Suspect]
     Indication: HEADACHE NOS
     Dosage: 2 UNK, UNK
     Route: 048
     Dates: start: 2002, end: 20121114
  2. ALEVE CAPLET/TABLET,MIDOL EXTENDED RELIEF CAPLET [Suspect]
     Indication: ARTHRITIS
     Dosage: UNK, BID
     Route: 048
     Dates: start: 201211
  3. ANTIHYPERTENSIVES [Concomitant]

REACTIONS (2)
  - Abdominal pain upper [Recovered/Resolved]
  - Drug ineffective [None]
